FAERS Safety Report 8827761 (Version 1)
Quarter: 2012Q4

REPORT INFORMATION
  Report Type: 
  Country: US (occurrence: US)
  Receive Date: 20121008
  Receipt Date: 20121008
  Transmission Date: 20130627
  Serious: No
  Sender: FDA-Public Use
  Company Number: US-PFIZER INC-2012246665

PATIENT
  Sex: Female

DRUGS (2)
  1. ADVIL [Suspect]
     Dosage: UNK
     Route: 048
  2. ADVIL [Suspect]
     Dosage: 2 tablets of ibuprofen in the morning and 2 tablets six hours later

REACTIONS (1)
  - Palpitations [Unknown]
